FAERS Safety Report 7002008-9 (Version None)
Quarter: 2010Q3

REPORT INFORMATION
  Report Type: 
  Country: None (occurrence: None)
  Receive Date: 20100920
  Receipt Date: 20100909
  Transmission Date: 20110219
  Serious: Yes (Death, Hospitalization)
  Sender: FDA-Public Use
  Company Number: B0675157A

PATIENT
  Sex: Male

DRUGS (10)
  1. DIFFU K [Suspect]
     Indication: PRODUCT USED FOR UNKNOWN INDICATION
     Route: 048
     Dates: end: 20100111
  2. PREVISCAN [Suspect]
     Indication: PROPHYLAXIS
     Dosage: 5MG AT NIGHT
     Route: 048
     Dates: start: 20100106, end: 20100107
  3. ICAZ [Suspect]
     Route: 048
  4. URBANYL [Suspect]
     Indication: ANXIETY
     Route: 048
     Dates: end: 20100111
  5. SEROPLEX [Suspect]
     Indication: DEPRESSION
     Dosage: 5MG TWICE PER DAY
     Route: 048
     Dates: end: 20100111
  6. TADENAN [Suspect]
     Indication: PRODUCT USED FOR UNKNOWN INDICATION
     Dosage: 50MG TWICE PER DAY
     Route: 048
     Dates: end: 20100111
  7. KARDEGIC [Concomitant]
  8. FUCIDINE CAP [Concomitant]
  9. XYZAL [Concomitant]
  10. ATARAX [Concomitant]

REACTIONS (5)
  - MELAENA [None]
  - MULTI-ORGAN FAILURE [None]
  - SEPTIC SHOCK [None]
  - TOXIC SKIN ERUPTION [None]
  - URTICARIA [None]
